FAERS Safety Report 16935347 (Version 2)
Quarter: 2020Q3

REPORT INFORMATION
  Report Type: Spontaneous
  Country: US (occurrence: US)
  Receive Date: 20191018
  Receipt Date: 20200918
  Transmission Date: 20201102
  Serious: No
  Sender: FDA-Public Use
  Company Number: US-SA-2019SA285180

PATIENT

DRUGS (1)
  1. DUPIXENT [Suspect]
     Active Substance: DUPILUMAB
     Indication: PSORIASIS
     Dosage: 300 MG, QOW
     Route: 058
     Dates: start: 20190820

REACTIONS (3)
  - Psoriasis [Not Recovered/Not Resolved]
  - Injection site pain [Not Recovered/Not Resolved]
  - Product use in unapproved indication [Unknown]

NARRATIVE: CASE EVENT DATE: 2019
